FAERS Safety Report 12230364 (Version 1)
Quarter: 2016Q1

REPORT INFORMATION
  Report Type: Spontaneous
  Country: US (occurrence: None)
  Receive Date: 20160331
  Receipt Date: 20160331
  Transmission Date: 20160526
  Serious: No
  Sender: FDA-Public Use
  Company Number: None

PATIENT
  Sex: Female

DRUGS (1)
  1. TRADJENTA [Suspect]
     Active Substance: LINAGLIPTIN
     Indication: TYPE 2 DIABETES MELLITUS
     Route: 048
     Dates: start: 20160324, end: 20160330

REACTIONS (5)
  - Muscle disorder [None]
  - Blood glucose increased [None]
  - Hypotension [None]
  - Asthenia [None]
  - Fall [None]

NARRATIVE: CASE EVENT DATE: 20160329
